FAERS Safety Report 11293215 (Version 2)
Quarter: 2015Q3

REPORT INFORMATION
  Report Type: Spontaneous
  Country: GB (occurrence: GB)
  Receive Date: 20150722
  Receipt Date: 20150805
  Transmission Date: 20151125
  Serious: Yes (Hospitalization)
  Sender: FDA-Public Use
  Company Number: GB-MYLANLABS-2015M1023450

PATIENT

DRUGS (3)
  1. KIVEXA [Concomitant]
     Active Substance: ABACAVIR SULFATE\LAMIVUDINE
     Indication: ANTIRETROVIRAL THERAPY
     Dosage: UNK
     Route: 048
  2. NEVIRAPINE MYLAN 200MG TABLETS [Suspect]
     Active Substance: NEVIRAPINE
     Indication: ANTIRETROVIRAL THERAPY
     Dosage: UNK
     Route: 048
  3. DAPSONE. [Concomitant]
     Active Substance: DAPSONE
     Indication: ANTIRETROVIRAL THERAPY
     Dosage: UNK
     Route: 048

REACTIONS (1)
  - Hospitalisation [Unknown]
